FAERS Safety Report 8483459-2 (Version None)
Quarter: 2012Q3

REPORT INFORMATION
  Report Type: 
  Country: None (occurrence: None)
  Receive Date: 20120702
  Receipt Date: 20120620
  Transmission Date: 20120928
  Serious: Yes (Death, Hospitalization)
  Sender: FDA-Public Use
  Company Number: DE-ROCHE-1074632

PATIENT
  Sex: Female
  Weight: 79 kg

DRUGS (3)
  1. PEGASYS [Suspect]
     Indication: HEPATITIS C
     Route: 058
     Dates: start: 20120113, end: 20120518
  2. COPEGUS [Suspect]
     Indication: HEPATITIS C
     Dates: start: 20120101
  3. BOCEPREVIR [Suspect]
     Indication: HEPATITIS C
     Dates: start: 20120201

REACTIONS (7)
  - ACUTE HEPATIC FAILURE [None]
  - ENDOCARDITIS [None]
  - PNEUMONIA [None]
  - LACTIC ACIDOSIS [None]
  - RESPIRATORY FAILURE [None]
  - CARDIOVASCULAR INSUFFICIENCY [None]
  - URINARY TRACT INFECTION [None]
